FAERS Safety Report 6750900-2 (Version None)
Quarter: 2010Q2

REPORT INFORMATION
  Report Type: 
  Country: None (occurrence: None)
  Receive Date: 20100602
  Receipt Date: 20100527
  Transmission Date: 20101027
  Serious: Yes (Hospitalization, Other)
  Sender: FDA-Public Use
  Company Number: US-BAYER-201022768NA

PATIENT
  Age: 60 Year
  Sex: Female

DRUGS (1)
  1. BETASERON [Suspect]
     Indication: DRUG USE FOR UNKNOWN INDICATION
     Route: 058
     Dates: start: 20080608, end: 20090208

REACTIONS (8)
  - ANKLE FRACTURE [None]
  - BALANCE DISORDER [None]
  - DRUG HYPERSENSITIVITY [None]
  - FALL [None]
  - MULTIPLE SCLEROSIS RELAPSE [None]
  - PRURITUS GENERALISED [None]
  - URINARY TRACT INFECTION [None]
  - URTICARIA [None]
